FAERS Safety Report 9479536 (Version 1)
Quarter: 2013Q3

REPORT INFORMATION
  Report Type: Spontaneous
  Country: US (occurrence: US)
  Receive Date: 20130827
  Receipt Date: 20130827
  Transmission Date: 20140515
  Serious: Yes (Hospitalization, Other)
  Sender: FDA-Public Use
  Company Number: US-UCBSA-095921

PATIENT
  Sex: Female

DRUGS (1)
  1. CIMZIA [Suspect]
     Indication: CROHN^S DISEASE
     Dosage: NO. OF DOSES RECEIVED: 7
     Dates: start: 20130424

REACTIONS (2)
  - Drug abuse [Not Recovered/Not Resolved]
  - Alcohol abuse [Not Recovered/Not Resolved]
